FAERS Safety Report 16723790 (Version 1)
Quarter: 2019Q3

REPORT INFORMATION
  Report Type: Spontaneous
  Country: CA (occurrence: CA)
  Receive Date: 20190821
  Receipt Date: 20190821
  Transmission Date: 20191005
  Serious: Yes (Other)
  Sender: FDA-Public Use
  Company Number: CA-AUROBINDO-AUR-APL-2019-054020

PATIENT

DRUGS (2)
  1. AMOXICILLIN. [Suspect]
     Active Substance: AMOXICILLIN
     Indication: RESPIRATORY TRACT INFECTION
     Dosage: UNK
     Route: 065
  2. REMICADE [Suspect]
     Active Substance: INFLIXIMAB
     Indication: COLITIS ULCERATIVE
     Dosage: 600 MILLIGRAM
     Route: 042

REACTIONS (6)
  - Haematochezia [Recovered/Resolved]
  - Respiratory tract infection [Recovered/Resolved]
  - Frequent bowel movements [Recovered/Resolved]
  - General physical health deterioration [Recovered/Resolved]
  - Abdominal discomfort [Recovered/Resolved]
  - Rectal haemorrhage [Recovered/Resolved]
